FAERS Safety Report 7210443-9 (Version None)
Quarter: 2011Q1

REPORT INFORMATION
  Report Type: 
  Country: None (occurrence: None)
  Receive Date: 20110105
  Receipt Date: 20101126
  Transmission Date: 20110831
  Serious: Yes (Other)
  Sender: FDA-Public Use
  Company Number: AU-BAYER-201033693GPV

PATIENT
  Age: 38 Year
  Sex: Female

DRUGS (2)
  1. YAZ [Suspect]
     Indication: MENSTRUATION IRREGULAR
     Dosage: UNK
     Dates: start: 20100422, end: 20100714
  2. YAZ [Suspect]
     Dosage: UNK
     Dates: start: 20100318

REACTIONS (4)
  - DEAFNESS UNILATERAL [None]
  - MUSCULOSKELETAL STIFFNESS [None]
  - TINNITUS [None]
  - MUSCULAR WEAKNESS [None]
